FAERS Safety Report 4652213-1 (Version None)
Quarter: 2005Q2

REPORT INFORMATION
  Report Type: 
  Country: None (occurrence: None)
  Receive Date: 20050502
  Receipt Date: 20050420
  Transmission Date: 20051028
  Serious: Yes (Hospitalization)
  Sender: FDA-Public Use
  Company Number: 2005AP01972

PATIENT
  Age: 69 Year
  Sex: Female
  Weight: 59 kg

DRUGS (9)
  1. IRESSA [Suspect]
     Indication: BREAST CANCER
     Dosage: 250 MG DAILY PO
     Route: 048
     Dates: start: 20050221, end: 20050330
  2. IRESSA [Suspect]
     Indication: BREAST CANCER
     Dosage: 250 MG DAILY PO
     Route: 048
     Dates: start: 20050331
  3. GEMCITABINE [Suspect]
     Indication: BREAST CANCER
     Dosage: 1000 MG/M2 DAILY IV
     Route: 042
     Dates: start: 20050221, end: 20050329
  4. GEMCITABINE [Suspect]
     Indication: BREAST CANCER
     Dosage: 1000 MG/M2 DAILY IV
     Route: 042
  5. VINORELBINE TARTRATE [Suspect]
     Indication: BREAST CANCER
     Dosage: 25 MG/M2 DAILY IV
     Route: 042
     Dates: start: 20050221, end: 20050329
  6. VINORELBINE TARTRATE [Suspect]
     Indication: BREAST CANCER
     Dosage: 25 MG/M2 DAILY IV
     Route: 042
  7. ULTRAVIST (PHARMACY BULK) [Suspect]
     Indication: COMPUTERISED TOMOGRAM
     Dates: start: 20050329, end: 20050329
  8. ULTRAVIST (PHARMACY BULK) [Suspect]
     Indication: SCAN WITH CONTRAST
     Dates: start: 20050329, end: 20050329
  9. AUGMENTIN '125' [Concomitant]

REACTIONS (8)
  - BLOODY DISCHARGE [None]
  - ERYTHEMA [None]
  - EXTRAVASATION [None]
  - OEDEMA PERIPHERAL [None]
  - PEMPHIGUS [None]
  - SECRETION DISCHARGE [None]
  - SKIN LESION [None]
  - SKIN WARM [None]
